FAERS Safety Report 18796256 (Version 1)
Quarter: 2021Q1

REPORT INFORMATION
  Report Type: Spontaneous
  Country: AR (occurrence: AR)
  Receive Date: 20210127
  Receipt Date: 20210127
  Transmission Date: 20210419
  Serious: Yes (Hospitalization, Other)
  Sender: FDA-Public Use
  Company Number: AR-PFIZER INC-2021057766

PATIENT
  Sex: Male

DRUGS (1)
  1. BOSUTINIB [Suspect]
     Active Substance: BOSUTINIB
     Indication: CHRONIC MYELOID LEUKAEMIA
     Dosage: 500 MG, DAILY
     Dates: start: 202012, end: 202101

REACTIONS (7)
  - Diarrhoea [Unknown]
  - Pancytopenia [Unknown]
  - Acute kidney injury [Unknown]
  - Leukopenia [Unknown]
  - Dehydration [Unknown]
  - COVID-19 pneumonia [Unknown]
  - COVID-19 [Unknown]
